FAERS Safety Report 17167613 (Version 1)
Quarter: 2019Q4

REPORT INFORMATION
  Report Type: Report from Study
  Country: GB (occurrence: GB)
  Receive Date: 20191218
  Receipt Date: 20191218
  Transmission Date: 20200122
  Serious: Yes (Other)
  Sender: FDA-Public Use
  Company Number: GB-AUROBINDO-AUR-APL-2019-105001

PATIENT
  Age: 45 Year

DRUGS (12)
  1. FAVIPIRAVIR [Concomitant]
     Active Substance: FAVIPIRAVIR
     Indication: INFECTION
     Dosage: UNK
     Route: 065
  2. NITAZOXANIDE [Concomitant]
     Active Substance: NITAZOXANIDE
     Indication: GASTROENTERITIS NOROVIRUS
  3. ETHAMBUTOL [Concomitant]
     Active Substance: ETHAMBUTOL HYDROCHLORIDE
     Indication: MYCOBACTERIUM AVIUM COMPLEX INFECTION
     Dosage: UNK
     Route: 065
  4. RIBAVIRIN. [Suspect]
     Active Substance: RIBAVIRIN
     Indication: GASTROENTERITIS NOROVIRUS
     Dosage: 200 MILLIGRAM, IN THE MORNING
     Route: 065
  5. PREDNISOLONE. [Suspect]
     Active Substance: PREDNISOLONE
     Indication: IMMUNODEFICIENCY COMMON VARIABLE
     Dosage: UNK
     Route: 065
  6. FAVIPIRAVIR [Concomitant]
     Active Substance: FAVIPIRAVIR
     Indication: GASTROENTERITIS NOROVIRUS
  7. INFLIXIMAB [Suspect]
     Active Substance: INFLIXIMAB
     Indication: IMMUNODEFICIENCY COMMON VARIABLE
     Dosage: UNK
     Route: 065
  8. AMIKACIN. [Concomitant]
     Active Substance: AMIKACIN
     Indication: MYCOBACTERIUM AVIUM COMPLEX INFECTION
     Dosage: UNK
     Route: 065
  9. RIBAVIRIN. [Suspect]
     Active Substance: RIBAVIRIN
     Indication: INFECTION
     Dosage: UNK
     Route: 065
  10. RIBAVIRIN. [Suspect]
     Active Substance: RIBAVIRIN
     Dosage: 400 MILLIGRAM, IN THE EVENING
     Route: 065
  11. AZITHROMYCIN ANHYDROUS. [Concomitant]
     Active Substance: AZITHROMYCIN ANHYDROUS
     Indication: MYCOBACTERIUM AVIUM COMPLEX INFECTION
     Dosage: UNK
     Route: 065
  12. NITAZOXANIDE [Concomitant]
     Active Substance: NITAZOXANIDE
     Indication: INFECTION
     Dosage: UNK
     Route: 065

REACTIONS (2)
  - Anaemia [Unknown]
  - Gastroenteritis norovirus [Not Recovered/Not Resolved]
